FAERS Safety Report 4917293-4 (Version None)
Quarter: 2006Q1

REPORT INFORMATION
  Report Type: 
  Country: None (occurrence: None)
  Receive Date: 20060221
  Receipt Date: 20050421
  Transmission Date: 20060701
  Serious: Yes (Hospitalization)
  Sender: FDA-Public Use
  Company Number: US-MERCK-0504USA04303

PATIENT
  Age: 58 Year
  Sex: Female
  Weight: 82 kg

DRUGS (11)
  1. VIOXX [Suspect]
     Indication: ARTHRITIS
     Route: 048
     Dates: start: 20000801, end: 20030612
  2. NIACIN [Concomitant]
     Route: 065
  3. ATENOLOL [Concomitant]
     Route: 065
  4. ZOCOR [Concomitant]
     Route: 048
  5. GLUCOPHAGE [Concomitant]
     Route: 065
  6. LOTREL [Concomitant]
     Route: 065
  7. ASPIRIN [Concomitant]
     Route: 065
  8. COREG [Concomitant]
     Route: 065
  9. BENICAR HCT [Concomitant]
     Route: 065
  10. ACTOS [Concomitant]
     Route: 065
  11. ADVICOR [Concomitant]
     Route: 065

REACTIONS (17)
  - ANGINA UNSTABLE [None]
  - CHEST PAIN [None]
  - CORONARY ARTERY DISEASE [None]
  - COUGH [None]
  - DEHYDRATION [None]
  - DYSPNOEA [None]
  - DYSPNOEA PAROXYSMAL NOCTURNAL [None]
  - ELECTROCARDIOGRAM CHANGE [None]
  - GASTRITIS [None]
  - HERPES SIMPLEX [None]
  - INJURY [None]
  - ISCHAEMIC CARDIOMYOPATHY [None]
  - RENAL FAILURE ACUTE [None]
  - RHABDOMYOLYSIS [None]
  - ROTATOR CUFF SYNDROME [None]
  - SYNCOPE [None]
  - URINARY TRACT INFECTION [None]
